FAERS Safety Report 9059505 (Version 1)
Quarter: 2013Q1

REPORT INFORMATION
  Report Type: Spontaneous
  Country: CH (occurrence: CH)
  Receive Date: 20130211
  Receipt Date: 20130211
  Transmission Date: 20140127
  Serious: Yes (Hospitalization)
  Sender: FDA-Public Use
  Company Number: CH-TEVA-384767ISR

PATIENT
  Age: 39 Year
  Sex: Female

DRUGS (5)
  1. VENLAFAXINE [Suspect]
     Indication: DEPRESSION
     Dosage: 75 MILLIGRAM DAILY;
     Route: 065
     Dates: start: 2002
  2. VENLAFAXINE [Suspect]
     Indication: DEPRESSION
     Dosage: 150 MILLIGRAM DAILY;
     Route: 065
     Dates: start: 2008
  3. VENLAFAXINE [Suspect]
     Dosage: 75 MILLIGRAM DAILY;
     Dates: start: 200905
  4. VENLAFAXINE [Suspect]
     Dosage: 300 MILLIGRAM DAILY;
     Dates: start: 201109
  5. MIZOLASTINE [Concomitant]
     Indication: CONJUNCTIVITIS ALLERGIC
     Dosage: 10 MILLIGRAM DAILY;
     Route: 065
     Dates: start: 200903

REACTIONS (1)
  - Hepatitis cholestatic [Recovered/Resolved]
